FAERS Safety Report 4918684-8 (Version None)
Quarter: 2006Q1

REPORT INFORMATION
  Report Type: 
  Country: None (occurrence: None)
  Receive Date: 20060216
  Receipt Date: 20060208
  Transmission Date: 20060701
  Serious: Yes (Hospitalization)
  Sender: FDA-Public Use
  Company Number: 200610772BWH

PATIENT
  Age: 62 Year
  Sex: Male

DRUGS (6)
  1. NEXAVAR [Suspect]
     Indication: RENAL CELL CARCINOMA STAGE UNSPECIFIED
     Dosage: 400 MG, BID, ORAL
     Route: 048
     Dates: start: 20060107
  2. LIPITOR [Concomitant]
  3. ARTHROTEC [Concomitant]
  4. IRON [Concomitant]
  5. PROTONIX [Concomitant]
  6. ATARAX [Concomitant]

REACTIONS (2)
  - LUNG DISORDER [None]
  - PULMONARY EMBOLISM [None]
